FAERS Safety Report 5004229-3 (Version None)
Quarter: 2006Q2

REPORT INFORMATION
  Report Type: 
  Country: None (occurrence: None)
  Receive Date: 20060517
  Receipt Date: 20051005
  Transmission Date: 20061013
  Serious: Yes (Hospitalization, Disabling)
  Sender: FDA-Public Use
  Company Number: PR-MERCK-0510USA05243

PATIENT
  Age: 43 Year
  Sex: Male
  Weight: 105 kg

DRUGS (3)
  1. VIOXX [Suspect]
     Indication: INTERVERTEBRAL DISC PROTRUSION
     Route: 048
     Dates: start: 19990101
  2. VIOXX [Suspect]
     Route: 048
  3. [THERAPY UNSPECIFIED] [Concomitant]
     Route: 048

REACTIONS (22)
  - ANGINA PECTORIS [None]
  - ARRHYTHMIA [None]
  - ARTERIAL THROMBOSIS LIMB [None]
  - ARTHRALGIA [None]
  - BACK INJURY [None]
  - DEPRESSION [None]
  - DYSGEUSIA [None]
  - GASTRIC DISORDER [None]
  - GENERAL SYMPTOM [None]
  - HEADACHE [None]
  - HYPERTENSION [None]
  - INTERVERTEBRAL DISC DEGENERATION [None]
  - INTERVERTEBRAL DISC DISPLACEMENT [None]
  - MYOSITIS [None]
  - PARAESTHESIA [None]
  - PERIPHERAL SENSORY NEUROPATHY [None]
  - POLYTRAUMATISM [None]
  - PRESCRIBED OVERDOSE [None]
  - ROAD TRAFFIC ACCIDENT [None]
  - SLEEP APNOEA SYNDROME [None]
  - SPINAL OSTEOARTHRITIS [None]
  - VENOUS INSUFFICIENCY [None]
